FAERS Safety Report 21756915 (Version 1)
Quarter: 2022Q4

REPORT INFORMATION
  Report Type: Report from Study
  Country: US (occurrence: None)
  Receive Date: 20221220
  Receipt Date: 20221220
  Transmission Date: 20230112
  Serious: Yes (Life-Threatening)
  Sender: FDA-Public Use
  Company Number: 2016SE91105

PATIENT
  Age: 42 Year
  Sex: Female
  Weight: 41.7 kg

DRUGS (14)
  1. FASLODEX [Suspect]
     Active Substance: FULVESTRANT
     Indication: Breast cancer metastatic
     Dosage: 250 MG ADMINISTERED ON DAYS 1 AND 15 OF CYCLE 1, THEN DAY 1 OF EACH SUBSEQUENT 28-DAY CYCLE.
     Route: 030
     Dates: start: 20140703, end: 20160823
  2. GOSERELIN [Suspect]
     Active Substance: GOSERELIN
     Indication: Breast cancer metastatic
     Dosage: 3.6 MG, GIVEN MONTHLY WITH FULVERSTRANT
     Route: 058
     Dates: start: 20160823, end: 20160823
  3. PALBOCICLIB [Suspect]
     Active Substance: PALBOCICLIB
     Indication: Breast cancer metastatic
     Dosage: 125 MG DAILY FOR 3 WEEKS FOLLOWED BY 1 WEEK OFF
     Route: 048
     Dates: start: 20140703, end: 20160831
  4. VITAMIN D3 CHOLECALCIFEROL [Concomitant]
     Route: 065
     Dates: start: 20160628
  5. ERGOCALCIFEROL [Concomitant]
     Active Substance: ERGOCALCIFEROL
     Indication: Vitamin D deficiency
     Route: 065
     Dates: start: 20160628
  6. NEURONTIN [Concomitant]
     Active Substance: GABAPENTIN
     Indication: Hot flush
     Route: 065
     Dates: start: 20160628
  7. NORCO/LORTAB [Concomitant]
     Indication: Pain
     Route: 065
     Dates: start: 20160628
  8. EMLA [Concomitant]
     Active Substance: LIDOCAINE\PRILOCAINE
     Indication: Vulvovaginal dryness
     Route: 065
     Dates: start: 20160628
  9. CVS NAPROXEN SODIUM [Concomitant]
     Indication: Headache
     Route: 065
     Dates: start: 20160628
  10. CVS NAPROXEN SODIUM [Concomitant]
     Indication: Pain
     Route: 065
     Dates: start: 20160628
  11. OXYCODONE-ACETAMINOPHEN) [Concomitant]
     Indication: Pain
     Route: 065
     Dates: start: 20160628
  12. VALTREX [Concomitant]
     Active Substance: VALACYCLOVIR HYDROCHLORIDE
     Indication: Lip infection
     Route: 065
     Dates: start: 20160628
  13. BENADRYL [Concomitant]
     Active Substance: DIPHENHYDRAMINE HYDROCHLORIDE
     Indication: Hypersensitivity
     Route: 065
     Dates: start: 20160628
  14. PEPCID [Concomitant]
     Active Substance: FAMOTIDINE
     Indication: Stress ulcer
     Route: 065
     Dates: start: 20160628

REACTIONS (1)
  - Hypersensitivity [Recovered/Resolved]

NARRATIVE: CASE EVENT DATE: 20160826
